FAERS Safety Report 9995035 (Version 3)
Quarter: 2014Q2

REPORT INFORMATION
  Report Type: Spontaneous
  Country: IT (occurrence: IT)
  Receive Date: 20140311
  Receipt Date: 20140407
  Transmission Date: 20141212
  Serious: Yes (Other)
  Sender: FDA-Public Use
  Company Number: IT-ACCORD-022057

PATIENT
  Age: 72 Year
  Sex: Male

DRUGS (3)
  1. FINASTERIDE [Suspect]
     Route: 048
     Dates: start: 20131221, end: 20131221
  2. METFORMIN [Suspect]
     Route: 048
     Dates: start: 20131221, end: 20131221
  3. SAMYR [Suspect]
     Route: 048
     Dates: start: 20131221, end: 20131221

REACTIONS (2)
  - Drug abuse [Unknown]
  - Agitation [Recovering/Resolving]
